FAERS Safety Report 13804197 (Version 1)
Quarter: 2017Q3

REPORT INFORMATION
  Report Type: Spontaneous
  Country: TR (occurrence: TR)
  Receive Date: 20170728
  Receipt Date: 20170728
  Transmission Date: 20171127
  Serious: Yes (Other)
  Sender: FDA-Public Use
  Company Number: TR-MYLANLABS-2017M1044841

PATIENT

DRUGS (1)
  1. DESMOPRESSIN [Suspect]
     Active Substance: DESMOPRESSIN
     Indication: END STAGE RENAL DISEASE
     Dosage: 15 MICRO G FOR OVER 20 MINUTES
     Route: 041

REACTIONS (2)
  - Hypertension [Unknown]
  - Pulmonary oedema [Unknown]
